FAERS Safety Report 5505035-3 (Version None)
Quarter: 2007Q4

REPORT INFORMATION
  Report Type: 
  Country: None (occurrence: None)
  Receive Date: 20071102
  Receipt Date: 20071023
  Transmission Date: 20080405
  Serious: Yes (Hospitalization)
  Sender: FDA-Public Use
  Company Number: US-ROCHE-527387

PATIENT
  Age: 40 Year
  Sex: Male

DRUGS (3)
  1. CEFTRIAXONE SODIUM [Suspect]
     Indication: MENINGITIS
     Route: 065
  2. VANCOMYCIN [Suspect]
     Indication: MENINGITIS
     Route: 065
  3. ACYCLOVIR [Concomitant]

REACTIONS (1)
  - NEPHRITIS INTERSTITIAL [None]
